FAERS Safety Report 10129509 (Version 1)
Quarter: 2014Q2

REPORT INFORMATION
  Report Type: Report from Study
  Country: US (occurrence: US)
  Receive Date: 20140428
  Receipt Date: 20140428
  Transmission Date: 20141212
  Serious: Yes (Other)
  Sender: FDA-Public Use
  Company Number: US-ROCHE-1386369

PATIENT
  Sex: 0

DRUGS (1)
  1. BEVACIZUMAB [Suspect]
     Indication: NEUROFIBROMATOSIS
     Route: 042

REACTIONS (2)
  - Proteinuria [Unknown]
  - Cryoglobulinaemia [Unknown]
